FAERS Safety Report 12192624 (Version 2)
Quarter: 2016Q2

REPORT INFORMATION
  Report Type: Spontaneous
  Country: US (occurrence: US)
  Receive Date: 20160318
  Receipt Date: 20160523
  Transmission Date: 20160815
  Serious: Yes (Other)
  Sender: FDA-Public Use
  Company Number: US-TEVA-643951USA

PATIENT
  Age: 32 Year
  Sex: Female

DRUGS (1)
  1. ZECUITY [Suspect]
     Active Substance: SUMATRIPTAN SUCCINATE
     Indication: MIGRAINE
     Route: 062
     Dates: start: 20160313, end: 20160313

REACTIONS (5)
  - Application site urticaria [Unknown]
  - Application site burn [Not Recovered/Not Resolved]
  - Application site erythema [Unknown]
  - Application site pain [Not Recovered/Not Resolved]
  - Chemical injury [Not Recovered/Not Resolved]

NARRATIVE: CASE EVENT DATE: 20160313
